APPROVED DRUG PRODUCT: VANCOMYCIN HYDROCHLORIDE
Active Ingredient: VANCOMYCIN HYDROCHLORIDE
Strength: EQ 10GM BASE/VIAL
Dosage Form/Route: INJECTABLE;INJECTION
Application: A063076 | Product #002 | TE Code: AP
Applicant: HOSPIRA INC
Approved: Sep 14, 2020 | RLD: No | RS: No | Type: RX